FAERS Safety Report 5075805-7 (Version None)
Quarter: 2006Q3

REPORT INFORMATION
  Report Type: 
  Country: None (occurrence: None)
  Receive Date: 20060809
  Receipt Date: 20060426
  Transmission Date: 20061208
  Serious: Yes (Death, Hospitalization)
  Sender: FDA-Public Use
  Company Number: FR-GLAXOSMITHKLINE-B0421486A

PATIENT
  Age: 33 Year
  Sex: Male
  Weight: 65 kg

DRUGS (4)
  1. COMBIVIR [Suspect]
     Indication: HIV INFECTION
     Dosage: 2TAB PER DAY
     Route: 048
     Dates: start: 20060208, end: 20060307
  2. NORVIR [Suspect]
     Indication: HIV INFECTION
     Dosage: 100MG TWICE PER DAY
     Route: 048
     Dates: start: 20060208, end: 20060307
  3. INVIRASE [Suspect]
     Indication: HIV INFECTION
     Dosage: 500MG FOUR TIMES PER DAY
     Route: 048
     Dates: start: 20060208, end: 20060307
  4. CLAMOXYL [Concomitant]
     Indication: BRONCHITIS
     Route: 048
     Dates: start: 20060211, end: 20060219

REACTIONS (32)
  - ASCITES [None]
  - BRONCHITIS [None]
  - CENTRAL-ALVEOLAR HYPOVENTILATION [None]
  - CEREBRAL HAEMORRHAGE [None]
  - COMA [None]
  - CONFUSIONAL STATE [None]
  - DEHYDRATION [None]
  - DYSPNOEA [None]
  - EPSTEIN-BARR VIRUS INFECTION [None]
  - GASTROINTESTINAL DISORDER [None]
  - GENERAL PHYSICAL HEALTH DETERIORATION [None]
  - HEPATOMEGALY [None]
  - HISTIOCYTOSIS HAEMATOPHAGIC [None]
  - HYPERTHERMIA [None]
  - HYPOKALAEMIA [None]
  - HYPONATRAEMIA [None]
  - KAOLIN CEPHALIN CLOTTING TIME PROLONGED [None]
  - LUNG DISORDER [None]
  - LYMPHADENOPATHY [None]
  - METABOLIC ACIDOSIS [None]
  - MYDRIASIS [None]
  - NON-HODGKIN'S LYMPHOMA [None]
  - PANCYTOPENIA [None]
  - PLEURAL EFFUSION [None]
  - PYREXIA [None]
  - RENAL FAILURE [None]
  - RESPIRATORY DISORDER [None]
  - SERUM FERRITIN INCREASED [None]
  - SPLENIC ABSCESS [None]
  - STAPHYLOCOCCAL SEPSIS [None]
  - VENTRICULAR DYSFUNCTION [None]
  - WEIGHT DECREASED [None]
